FAERS Safety Report 9181623 (Version 2)
Quarter: 2013Q2

REPORT INFORMATION
  Report Type: Report from Study
  Country: JP (occurrence: JP)
  Receive Date: 20130322
  Receipt Date: 20130404
  Transmission Date: 20140414
  Serious: Yes (Other)
  Sender: FDA-Public Use
  Company Number: JP-ASTELLAS-2013JP004074

PATIENT
  Age: 73 Year
  Sex: Female
  Weight: 56.5 kg

DRUGS (4)
  1. SOLIFENACIN [Suspect]
     Indication: HYPERTONIC BLADDER
     Dosage: 5 MG, UID/QD
     Route: 048
     Dates: start: 20110210, end: 20130314
  2. MIRABEGRON [Suspect]
     Indication: HYPERTONIC BLADDER
     Dosage: 25 MG, UID/QD
     Route: 048
     Dates: start: 20130111, end: 20130314
  3. SERMION                            /00396401/ [Concomitant]
     Indication: LACUNAR INFARCTION
     Dosage: 5 MG, TID
     Route: 048
     Dates: start: 19990918
  4. CRESTOR [Concomitant]
     Indication: LIPID METABOLISM DISORDER
     Dosage: 5 MG, UID/QD
     Route: 048
     Dates: start: 20110112

REACTIONS (1)
  - Patella fracture [Not Recovered/Not Resolved]
